FAERS Safety Report 4453509-9 (Version None)
Quarter: 2004Q3

REPORT INFORMATION
  Report Type: 
  Country: None (occurrence: None)
  Receive Date: 20040920
  Receipt Date: 20040819
  Transmission Date: 20050211
  Serious: Yes (Other)
  Sender: FDA-Public Use
  Company Number: PHEH2004US09016

PATIENT
  Age: 89 Year
  Sex: Female
  Weight: 88 kg

DRUGS (2)
  1. LOTREL [Suspect]
     Indication: HYPERTENSION
     Dosage: 5/10, QD
     Route: 048
     Dates: start: 20030501
  2. LASIX [Concomitant]
     Indication: OEDEMA
     Dosage: 20 UNK, BID
     Route: 048
     Dates: start: 20020101

REACTIONS (5)
  - ANXIETY [None]
  - HALLUCINATION, AUDITORY [None]
  - INSOMNIA [None]
  - PRURITUS [None]
  - RASH GENERALISED [None]
